FAERS Safety Report 26170763 (Version 1)
Quarter: 2025Q4

REPORT INFORMATION
  Report Type: Spontaneous
  Country: US (occurrence: None)
  Receive Date: 20251217
  Receipt Date: 20251217
  Transmission Date: 20260118
  Serious: Yes (Death)
  Sender: FDA-CTU
  Company Number: None

PATIENT
  Sex: Male

DRUGS (11)
  1. COSENTYX [Suspect]
     Active Substance: SECUKINUMAB
     Indication: Hidradenitis
     Dosage: INJECT 1 PEN (300 MG) BY SUBCUTANEOUS ROUTE EVERY 2 WEEKS IN THE ABDOMEN, THIGH, OR OUTER  AREA OF UPPER ARM (ROTATE SITES)
     Route: 058
     Dates: start: 20240416
  2. ADMELOG [Concomitant]
     Active Substance: INSULIN LISPRO
  3. ALBUTEROL [Concomitant]
     Active Substance: ALBUTEROL
  4. AMLODIPINE [Concomitant]
     Active Substance: AMLODIPINE BESYLATE
  5. ASPIRIN [Concomitant]
     Active Substance: ASPIRIN
  6. ATORVASTATIN [Concomitant]
     Active Substance: ATORVASTATIN
  7. BASAGLAR [Concomitant]
     Active Substance: INSULIN GLARGINE
  8. BREO ELLIPTA [Concomitant]
     Active Substance: FLUTICASONE FUROATE\VILANTEROL TRIFENATATE
  9. CARVEDI LOL [Concomitant]
  10. FLUCONAZOLE [Concomitant]
     Active Substance: FLUCONAZOLE
  11. GLARGIN YFGN [Concomitant]

REACTIONS (1)
  - Death [None]
